FAERS Safety Report 25073177 (Version 1)
Quarter: 2025Q1

REPORT INFORMATION
  Report Type: Report from Study
  Country: US (occurrence: US)
  Receive Date: 20250313
  Receipt Date: 20250313
  Transmission Date: 20250408
  Serious: Yes (Other)
  Sender: NOVARTIS
  Company Number: US-002147023-NVSC2025US041779

PATIENT
  Sex: Female
  Weight: 81.19 kg

DRUGS (2)
  1. KISQALI [Suspect]
     Active Substance: RIBOCICLIB
     Indication: Breast cancer
     Route: 048
     Dates: start: 202412, end: 202412
  2. KISQALI [Suspect]
     Active Substance: RIBOCICLIB
     Indication: Lung neoplasm malignant

REACTIONS (4)
  - Hypersensitivity [Unknown]
  - Pharyngeal swelling [Unknown]
  - Rash [Unknown]
  - Urticaria [Unknown]
